FAERS Safety Report 7764756-2 (Version None)
Quarter: 2011Q3

REPORT INFORMATION
  Report Type: 
  Country: None (occurrence: None)
  Receive Date: 20110921
  Receipt Date: 20110921
  Transmission Date: 20111222
  Serious: Yes (Life-Threatening, Hospitalization)
  Sender: FDA-Public Use
  Company Number: None

PATIENT
  Age: 43 Year
  Sex: Male
  Weight: 74.842 kg

DRUGS (1)
  1. COMBIVIR [Suspect]
     Indication: HIV INFECTION
     Dosage: UNKNOWN
     Route: 048
     Dates: start: 20071203, end: 20080410

REACTIONS (2)
  - ANAEMIA [None]
  - PRODUCT QUALITY ISSUE [None]
